FAERS Safety Report 8842032 (Version 2)
Quarter: 2012Q4

REPORT INFORMATION
  Report Type: 
  Country: US (occurrence: US)
  Receive Date: 20121016
  Receipt Date: 20121031
  Transmission Date: 20130627
  Serious: No
  Sender: FDA-Public Use
  Company Number: US-B.I. PHARMACEUTICALS,INC./RIDGEFIELD-2012-BP-23915BP

PATIENT
  Age: 50 Year
  Sex: Female
  Weight: 64 kg

DRUGS (2)
  1. SPIRIVA [Suspect]
     Indication: CHRONIC OBSTRUCTIVE PULMONARY DISEASE
     Dosage: 18 mcg
     Route: 048
     Dates: start: 20120924, end: 20121015
  2. ALBUTEROL [Concomitant]
     Indication: CHRONIC OBSTRUCTIVE PULMONARY DISEASE
     Route: 055
     Dates: start: 20120924

REACTIONS (3)
  - Throat tightness [Recovered/Resolved]
  - Pharyngeal oedema [Recovered/Resolved]
  - Pruritus [Recovered/Resolved]
